FAERS Safety Report 9688342 (Version 4)
Quarter: 2014Q1

REPORT INFORMATION
  Report Type: Spontaneous
  Country: US (occurrence: US)
  Receive Date: 20131114
  Receipt Date: 20140109
  Transmission Date: 20141002
  Serious: Yes (Disabling)
  Sender: FDA-Public Use
  Company Number: US-DRREDDYS-USA/USA/13/0035529

PATIENT
  Age: 39 Year
  Sex: Female

DRUGS (1)
  1. IBUPROFEN [Suspect]
     Indication: TOOTH DISORDER
     Route: 065
     Dates: start: 2005

REACTIONS (3)
  - Back pain [Unknown]
  - Drug hypersensitivity [Not Recovered/Not Resolved]
  - Mechanical urticaria [Unknown]
